FAERS Safety Report 24781180 (Version 1)
Quarter: 2024Q4

REPORT INFORMATION
  Report Type: Spontaneous
  Country: TH (occurrence: TH)
  Receive Date: 20241227
  Receipt Date: 20241227
  Transmission Date: 20250115
  Serious: Yes (Other)
  Sender: AMGEN
  Company Number: TH-AMGEN-THASP2024252299

PATIENT
  Age: 60 Year
  Sex: Male

DRUGS (1)
  1. PROLIA [Suspect]
     Active Substance: DENOSUMAB
     Indication: Hip fracture
     Dosage: UNK
     Route: 065

REACTIONS (2)
  - Plasma cell myeloma [Unknown]
  - Off label use [Unknown]
